FAERS Safety Report 20461460 (Version 5)
Quarter: 2022Q4

REPORT INFORMATION
  Report Type: Spontaneous
  Country: US (occurrence: US)
  Receive Date: 20220211
  Receipt Date: 20221003
  Transmission Date: 20230113
  Serious: Yes (Other)
  Sender: FDA-Public Use
  Company Number: US-PFIZER INC-202200185432

PATIENT
  Age: 58 Year
  Sex: Female

DRUGS (3)
  1. IBRANCE [Suspect]
     Active Substance: PALBOCICLIB
     Indication: Breast cancer female
     Dosage: 125 MG
     Route: 048
     Dates: start: 20211217
  2. IBRANCE [Suspect]
     Active Substance: PALBOCICLIB
     Dosage: 100 MG, CYCLIC (TAKE 1 TABLET BY MOUTH DAILY FOR 21 DAYS, THEN 7 DAYS OFF)
     Route: 048
     Dates: start: 20220202
  3. IBRANCE [Suspect]
     Active Substance: PALBOCICLIB
     Dosage: 75 MG, CYCLIC (TAKE 1 TABLET BY MOUTH DAILY FOR 21 DAYS AND REPEAT EVERY 28 DAYS)
     Dates: start: 20220831

REACTIONS (7)
  - Hand fracture [Unknown]
  - Uterine disorder [Unknown]
  - White blood cell count decreased [Unknown]
  - Fatigue [Unknown]
  - Nausea [Unknown]
  - Abdominal discomfort [Unknown]
  - Pain [Unknown]

NARRATIVE: CASE EVENT DATE: 20220901
